FAERS Safety Report 14593326 (Version 1)
Quarter: 2018Q1

REPORT INFORMATION
  Report Type: Spontaneous
  Country: US (occurrence: US)
  Receive Date: 20180301
  Receipt Date: 20180301
  Transmission Date: 20180509
  Serious: No
  Sender: FDA-Public Use
  Company Number: None

PATIENT
  Age: 51 Year
  Sex: Female

DRUGS (1)
  1. HUMIRA [Suspect]
     Active Substance: ADALIMUMAB
     Indication: RHEUMATOID ARTHRITIS
     Dosage: 40MG EVERY 14 DAYS SUBCUTANEOUSLY
     Route: 058
     Dates: start: 20180110, end: 20180111

REACTIONS (4)
  - Pruritus [None]
  - Dry skin [None]
  - Rash generalised [None]
  - Urticaria [None]

NARRATIVE: CASE EVENT DATE: 20180110
